FAERS Safety Report 14023783 (Version 1)
Quarter: 2017Q3

REPORT INFORMATION
  Report Type: Spontaneous
  Country: US (occurrence: US)
  Receive Date: 20170929
  Receipt Date: 20170929
  Transmission Date: 20171128
  Serious: Yes (Other)
  Sender: FDA-Public Use
  Company Number: US-PFIZER INC-2017420449

PATIENT
  Age: 60 Year
  Sex: Male

DRUGS (4)
  1. MITOXANTRONE HCL [Suspect]
     Active Substance: MITOXANTRONE HYDROCHLORIDE
     Dosage: 12 MG/M2, UNK (Q3 WEEKS)
     Route: 042
     Dates: start: 20170329
  2. MITOXANTRONE HCL [Suspect]
     Active Substance: MITOXANTRONE HYDROCHLORIDE
     Indication: NEOPLASM MALIGNANT
     Dosage: 12 MG/M2, UNK(Q3 WEEKS)
     Route: 042
     Dates: start: 20170308
  3. MITOXANTRONE HCL [Suspect]
     Active Substance: MITOXANTRONE HYDROCHLORIDE
     Dosage: 12 MG/M2, UNK(Q3 WEEKS)
     Route: 042
     Dates: start: 20170419
  4. MITOXANTRONE HCL [Suspect]
     Active Substance: MITOXANTRONE HYDROCHLORIDE
     Dosage: 10 MG/M2, UNK (Q3 WEEKS)
     Route: 042
     Dates: start: 20170517

REACTIONS (2)
  - Bone marrow failure [Unknown]
  - Neutropenia [Unknown]
